FAERS Safety Report 6043230-8 (Version None)
Quarter: 2009Q1

REPORT INFORMATION
  Report Type: 
  Country: None (occurrence: None)
  Receive Date: 20090119
  Receipt Date: 20090107
  Transmission Date: 20090719
  Serious: Yes (Other)
  Sender: FDA-Public Use
  Company Number: GB-ELI_LILLY_AND_COMPANY-GB200901000639

PATIENT
  Age: 36 Year
  Sex: Male

DRUGS (9)
  1. CYMBALTA [Suspect]
     Indication: DEPRESSION
     Dosage: 60 MG, DAILY (1/D)
     Route: 048
     Dates: start: 20080501
  2. BECLOMETHASONE DIPROPIONATE [Concomitant]
     Route: 055
  3. DURAGESIC-100 [Concomitant]
     Dosage: ONCE IN THREE DAYS
     Route: 062
     Dates: start: 20071204
  4. FEXOFENADINE [Concomitant]
     Route: 048
     Dates: start: 20071204
  5. LYRICA [Concomitant]
     Route: 048
     Dates: start: 20080227
  6. MIGRALEVE [Concomitant]
  7. MORPHINE [Concomitant]
     Route: 048
     Dates: start: 20081204
  8. SINGULAIR [Concomitant]
  9. VENTOLIN [Concomitant]

REACTIONS (2)
  - JOINT SWELLING [None]
  - OEDEMA PERIPHERAL [None]
